FAERS Safety Report 18557706 (Version 1)
Quarter: 2020Q4

REPORT INFORMATION
  Report Type: Spontaneous
  Country: US (occurrence: US)
  Receive Date: 20201130
  Receipt Date: 20201130
  Transmission Date: 20210114
  Serious: No
  Sender: FDA-Public Use
  Company Number: US-JNJFOC-20201121512

PATIENT
  Age: 20 Year
  Sex: Female
  Weight: 68.1 kg

DRUGS (1)
  1. WOMENS ROGAINE UNSCENTED [Suspect]
     Active Substance: MINOXIDIL
     Indication: PRODUCT USED FOR UNKNOWN INDICATION
     Dosage: 2 CAPS, ONCE DAY, EVERYDAY, THE PATIENT LAST USED THE PRODUCT ON 08-NOV-2020.
     Route: 061
     Dates: start: 202003

REACTIONS (2)
  - Product container issue [Unknown]
  - Overdose [Unknown]

NARRATIVE: CASE EVENT DATE: 202003
